FAERS Safety Report 5853559-1 (Version None)
Quarter: 2008Q3

REPORT INFORMATION
  Report Type: 
  Country: None (occurrence: None)
  Receive Date: 20080822
  Receipt Date: 20080815
  Transmission Date: 20090109
  Serious: Yes (Other)
  Sender: FDA-Public Use
  Company Number: GB-JNJFOC-20080804226

PATIENT
  Age: 3 Decade
  Sex: Male

DRUGS (1)
  1. RISPERDAL [Suspect]
     Indication: SCHIZOPHRENIA
     Route: 048

REACTIONS (5)
  - AGITATION [None]
  - ANXIETY [None]
  - DYSKINESIA [None]
  - PARANOIA [None]
  - PSYCHOMOTOR HYPERACTIVITY [None]
